FAERS Safety Report 8989011 (Version 1)
Quarter: 2012Q4

REPORT INFORMATION
  Report Type: Report from Study
  Country: NL (occurrence: NL)
  Receive Date: 20121228
  Receipt Date: 20121228
  Transmission Date: 20130627
  Serious: Yes (Hospitalization)
  Sender: FDA-Public Use
  Company Number: NL-ABBOTT-12P-114-1023893-00

PATIENT
  Sex: Male
  Weight: 4.61 kg

DRUGS (1)
  1. SYNAGIS [Suspect]
     Indication: PREMATURE BABY
     Route: 051
     Dates: start: 2012

REACTIONS (1)
  - Hypophagia [Not Recovered/Not Resolved]
